FAERS Safety Report 6919862-9 (Version None)
Quarter: 2010Q3

REPORT INFORMATION
  Report Type: 
  Country: None (occurrence: None)
  Receive Date: 20100810
  Receipt Date: 20100810
  Transmission Date: 20110219
  Serious: Yes (Other)
  Sender: FDA-Public Use
  Company Number: None

PATIENT
  Age: 83 Year
  Sex: Female
  Weight: 63.9572 kg

DRUGS (1)
  1. OMEPRAZOLE [Suspect]

REACTIONS (17)
  - BLOOD URIC ACID INCREASED [None]
  - COLD SWEAT [None]
  - DIARRHOEA [None]
  - DYSPNOEA [None]
  - FEELING COLD [None]
  - GASTROOESOPHAGEAL REFLUX DISEASE [None]
  - HEADACHE [None]
  - HYPERHIDROSIS [None]
  - HYPOPHAGIA [None]
  - INSOMNIA [None]
  - MUSCULOSKELETAL STIFFNESS [None]
  - PAIN [None]
  - PRODUCT SUBSTITUTION ISSUE [None]
  - PRURITUS [None]
  - SINUSITIS [None]
  - SOMNOLENCE [None]
  - VOMITING [None]
